FAERS Safety Report 8106764-8 (Version None)
Quarter: 2012Q1

REPORT INFORMATION
  Report Type: 
  Country: None (occurrence: None)
  Receive Date: 20120202
  Receipt Date: 20120126
  Transmission Date: 20120608
  Serious: Yes (Other)
  Sender: FDA-Public Use
  Company Number: US-JNJFOC-20120112019

PATIENT
  Sex: Female
  Weight: 56.02 kg

DRUGS (8)
  1. FENTANYL-100 [Suspect]
     Indication: PAIN
     Route: 062
     Dates: start: 20070101, end: 20110301
  2. OMEPRAZOLE [Concomitant]
     Indication: GASTRIC DISORDER
     Route: 048
     Dates: start: 20000101
  3. SOMA [Concomitant]
     Indication: MUSCLE SPASMS
     Route: 048
     Dates: start: 20010101
  4. SIMVASTATIN [Concomitant]
     Indication: BLOOD CHOLESTEROL
     Route: 048
     Dates: start: 20060101
  5. PHENOBARBITAL TAB [Concomitant]
     Indication: HOT FLUSH
     Dosage: FOUR TIMES A DAY AS NEEDED
     Route: 048
     Dates: start: 20060101
  6. LORAZEPAM [Concomitant]
     Indication: ANXIETY
     Route: 048
     Dates: start: 20100101
  7. LISINOPRIL AND HYDROCHLOROTHIAZIDE [Concomitant]
     Indication: BLOOD PRESSURE
     Dosage: 20 MG/12.5 MG
     Route: 048
     Dates: start: 20000101
  8. DURAGESIC-100 [Suspect]
     Indication: PAIN
     Route: 062
     Dates: start: 20110301

REACTIONS (16)
  - SUICIDAL IDEATION [None]
  - PAIN [None]
  - PRODUCT PACKAGING ISSUE [None]
  - VISUAL IMPAIRMENT [None]
  - ABDOMINAL DISTENSION [None]
  - INAPPROPRIATE SCHEDULE OF DRUG ADMINISTRATION [None]
  - JOINT SWELLING [None]
  - THROMBOSIS [None]
  - SWELLING FACE [None]
  - PRODUCT QUALITY ISSUE [None]
  - HYPOAESTHESIA [None]
  - ABNORMAL LOSS OF WEIGHT [None]
  - CEREBROVASCULAR ACCIDENT [None]
  - DISTURBANCE IN SOCIAL BEHAVIOUR [None]
  - URINARY TRACT INFECTION [None]
  - WEIGHT INCREASED [None]
